FAERS Safety Report 6376087-6 (Version None)
Quarter: 2009Q3

REPORT INFORMATION
  Report Type: 
  Country: None (occurrence: None)
  Receive Date: 20090918
  Receipt Date: 20090909
  Transmission Date: 20100115
  Serious: Yes (Death)
  Sender: FDA-Public Use
  Company Number: 005708

PATIENT
  Sex: Male

DRUGS (6)
  1. BUSULFEX [Suspect]
     Indication: STEM CELL TRANSPLANT
     Dosage: INTRAVENOUS
     Route: 042
     Dates: start: 20090212, end: 20090213
  2. CYTARABINE [Suspect]
     Dates: start: 20090210
  3. ETOPOSIDE [Suspect]
     Dosage: INTRAVENOUS
     Route: 042
     Dates: start: 20090210
  4. FLUDARABINE PHOSPHATE [Concomitant]
  5. ENDOXAN NET (CYCLOPHOSPHAMIDE) [Concomitant]
  6. THYMOGLOBULIN [Concomitant]

REACTIONS (7)
  - CAPILLARY LEAK SYNDROME [None]
  - INTERSTITIAL LUNG DISEASE [None]
  - NEUTROPENIA [None]
  - OXYGEN SATURATION DECREASED [None]
  - PULMONARY HAEMORRHAGE [None]
  - PYREXIA [None]
  - TACHYPNOEA [None]
